FAERS Safety Report 21434527 (Version 3)
Quarter: 2022Q4

REPORT INFORMATION
  Report Type: Report from Study
  Country: US (occurrence: US)
  Receive Date: 20221010
  Receipt Date: 20221213
  Transmission Date: 20230113
  Serious: No
  Sender: FDA-Public Use
  Company Number: US-ABBVIE-4143265

PATIENT
  Age: 73 Year
  Sex: Male
  Weight: 77 kg

DRUGS (13)
  1. DUOPA [Suspect]
     Active Substance: CARBIDOPA\LEVODOPA
     Indication: Parkinson^s disease
     Route: 050
     Dates: start: 20180103
  2. DUOPA [Suspect]
     Active Substance: CARBIDOPA\LEVODOPA
  3. ROPINIROLE HYDROCHLORIDE [Concomitant]
     Active Substance: ROPINIROLE HYDROCHLORIDE
     Indication: Parkinson^s disease
     Dosage: ER?FORM STRENGTH 12 MILLIGRAM
     Route: 048
  4. CARBIDOPA\LEVODOPA [Concomitant]
     Active Substance: CARBIDOPA\LEVODOPA
     Indication: Product used for unknown indication
     Dosage: 25MG-100MG
     Route: 048
  5. LOTREL [Concomitant]
     Active Substance: AMLODIPINE BESYLATE\BENAZEPRIL HYDROCHLORIDE
     Indication: Blood pressure measurement
     Dosage: 5MG-20MG
     Route: 048
  6. TRAMADOL [Concomitant]
     Active Substance: TRAMADOL
     Indication: Pain in extremity
     Dosage: FORM STRENGTH 50 MILLIGRAM
     Route: 048
  7. URINOZINC [Concomitant]
     Indication: Vitamin supplementation
     Route: 048
  8. URINOZINC [Concomitant]
     Indication: Vitamin supplementation
     Dosage: FORM STRENGTH 1 TABLET
     Route: 048
  9. MELOXICAM [Concomitant]
     Active Substance: MELOXICAM
     Indication: Neuralgia
     Dosage: FORM STRENGTH 15 MILLIGRAM
     Route: 048
  10. GABAPENTIN [Concomitant]
     Active Substance: GABAPENTIN
     Indication: Neuralgia
     Dosage: FORM STRENGTH 400 MILLIGRAM
     Route: 048
  11. VITAMIN B COMPLEX [Concomitant]
     Active Substance: CYANOCOBALAMIN\DEXPANTHENOL\NIACINAMIDE\PYRIDOXINE HYDROCHLORIDE\RIBOFLAVIN 5^-PHOSPHATE SODIUM\THIA
     Indication: Vitamin supplementation
     Route: 048
  12. VITAMIN B COMPLEX [Concomitant]
     Active Substance: CYANOCOBALAMIN\DEXPANTHENOL\NIACINAMIDE\PYRIDOXINE HYDROCHLORIDE\RIBOFLAVIN 5^-PHOSPHATE SODIUM\THIA
     Indication: Vitamin supplementation
     Dosage: FORM STRENGTH  1 TABLET
     Route: 048
  13. DONEPEZIL HYDROCHLORIDE [Concomitant]
     Active Substance: DONEPEZIL HYDROCHLORIDE
     Indication: Amnesia
     Route: 065

REACTIONS (7)
  - Stoma site infection [Recovering/Resolving]
  - Nasopharyngitis [Not Recovered/Not Resolved]
  - Device occlusion [Not Recovered/Not Resolved]
  - Tooth infection [Not Recovered/Not Resolved]
  - Tooth extraction [Unknown]
  - Stoma site discharge [Unknown]
  - Tooth extraction [Recovered/Resolved]

NARRATIVE: CASE EVENT DATE: 20210801
